FAERS Safety Report 25842183 (Version 1)
Quarter: 2025Q3

REPORT INFORMATION
  Report Type: Report from Study
  Country: US (occurrence: US)
  Receive Date: 20250924
  Receipt Date: 20250924
  Transmission Date: 20251020
  Serious: Yes (Death, Other)
  Sender: GILEAD
  Company Number: US-GILEAD-2025-0729866

PATIENT
  Sex: Female

DRUGS (7)
  1. SELADELPAR [Suspect]
     Active Substance: SELADELPAR
     Indication: Primary biliary cholangitis
     Dosage: 10 MG, QD
     Route: 048
     Dates: start: 20250502
  2. DOCUSATE [Concomitant]
     Active Substance: DOCUSATE
  3. MAGNESIUM [Concomitant]
     Active Substance: MAGNESIUM
  4. MEMANTINE [Concomitant]
     Active Substance: MEMANTINE
  5. NITROFURANTOIN [Concomitant]
     Active Substance: NITROFURANTOIN
  6. TYLENOL [Concomitant]
     Active Substance: ACETAMINOPHEN
  7. URSODIOL [Concomitant]
     Active Substance: URSODIOL

REACTIONS (1)
  - Death [Fatal]
